FAERS Safety Report 10404226 (Version 3)
Quarter: 2014Q3

REPORT INFORMATION
  Report Type: Spontaneous
  Country: US (occurrence: None)
  Receive Date: 20140214
  Receipt Date: 20140815
  Transmission Date: 20150326
  Serious: No
  Sender: FDA-Public Use
  Company Number: A-US2014-93846

PATIENT
  Age: 53 Year
  Sex: Female

DRUGS (5)
  1. DIMETHYL SULFOXIDE [Concomitant]
     Active Substance: DIMETHYL SULFOXIDE
  2. XANAX [Concomitant]
     Active Substance: ALPRAZOLAM
  3. PREVACID [Concomitant]
     Active Substance: LANSOPRAZOLE
  4. OPSUMIT [Suspect]
     Active Substance: MACITENTAN
     Indication: PULMONARY ARTERIAL HYPERTENSION
     Route: 048
     Dates: start: 20140107
  5. CALCIUM +D3 (CALCIUM, COLCALCIFEROL) [Concomitant]

REACTIONS (10)
  - Influenza like illness [None]
  - Productive cough [None]
  - Somnolence [None]
  - Fatigue [None]
  - Malaise [None]
  - Headache [None]
  - Oropharyngeal pain [None]
  - Pruritus [None]
  - Cough [None]
  - Nasal congestion [None]

NARRATIVE: CASE EVENT DATE: 20140114
